FAERS Safety Report 18443840 (Version 1)
Quarter: 2020Q4

REPORT INFORMATION
  Report Type: Spontaneous
  Country: DE (occurrence: DE)
  Receive Date: 20201030
  Receipt Date: 20201030
  Transmission Date: 20210114
  Serious: Yes (Other)
  Sender: FDA-Public Use
  Company Number: DE-UCBSA-2020042766

PATIENT
  Age: 40 Year
  Sex: Female

DRUGS (2)
  1. LEGANTO [Suspect]
     Active Substance: ROTIGOTINE
     Indication: RESTLESS LEGS SYNDROME
     Dosage: UNK
  2. LEGANTO [Suspect]
     Active Substance: ROTIGOTINE
     Indication: PARKINSON^S DISEASE

REACTIONS (2)
  - Dental restoration failure [Unknown]
  - Bone disorder [Unknown]

NARRATIVE: CASE EVENT DATE: 2020
